FAERS Safety Report 8803645 (Version 1)
Quarter: 2012Q4

REPORT INFORMATION
  Report Type: 
  Country: US (occurrence: US)
  Receive Date: 20120924
  Receipt Date: 20120924
  Transmission Date: 20130627
  Serious: Yes (Hospitalization)
  Sender: FDA-Public Use
  Company Number: US-VIROPHARMA INCORPORATED-20120919CINRY3397

PATIENT
  Age: 20 None
  Sex: Female

DRUGS (1)
  1. CINRYZE (C1 ESTERASE INHIBITOR (HUMAN)) [Suspect]
     Indication: HEREDITARY ANGIOEDEMA
     Dates: start: 2008

REACTIONS (2)
  - Urinary tract infection [Recovering/Resolving]
  - Hereditary angioedema [Recovered/Resolved]
